FAERS Safety Report 26213483 (Version 1)
Quarter: 2025Q4

REPORT INFORMATION
  Report Type: Spontaneous
  Country: US (occurrence: US)
  Receive Date: 20251230
  Receipt Date: 20251230
  Transmission Date: 20260117
  Serious: Yes (Hospitalization, Other)
  Sender: MYLAN
  Company Number: US-MYLANLABS-2025M1110653

PATIENT
  Age: 40 Year
  Sex: Female

DRUGS (2)
  1. FENTANYL [Suspect]
     Active Substance: FENTANYL
     Indication: Product used for unknown indication
     Dosage: UNK
  2. AMPHETAMINE [Suspect]
     Active Substance: AMPHETAMINE
     Indication: Product used for unknown indication
     Dosage: UNK

REACTIONS (6)
  - Asthmatic crisis [Unknown]
  - Acute respiratory failure [Unknown]
  - Drug screen positive [Unknown]
  - Withdrawal syndrome [Recovered/Resolved]
  - Agitation [Unknown]
  - Injection site ulcer [Unknown]
